FAERS Safety Report 23672935 (Version 3)
Quarter: 2024Q2

REPORT INFORMATION
  Report Type: Spontaneous
  Country: AR (occurrence: AR)
  Receive Date: 20240326
  Receipt Date: 20240422
  Transmission Date: 20240716
  Serious: Yes (Hospitalization)
  Sender: FDA-Public Use
  Company Number: AR-BIOVITRUM-2024-AR-001279

PATIENT
  Age: 15 Year
  Sex: Female

DRUGS (1)
  1. ORFADIN [Suspect]
     Active Substance: NITISINONE
     Indication: Tyrosinaemia
     Dosage: 50MG PER DAY
     Route: 065
     Dates: end: 20231224

REACTIONS (3)
  - Vomiting [Recovered/Resolved]
  - Hepatic pain [Recovered/Resolved]
  - Insurance issue [Unknown]
